FAERS Safety Report 12384671 (Version 1)
Quarter: 2016Q2

REPORT INFORMATION
  Report Type: Spontaneous
  Country: US (occurrence: US)
  Receive Date: 20160519
  Receipt Date: 20160519
  Transmission Date: 20160815
  Serious: No
  Sender: FDA-Public Use
  Company Number: US-PFIZER INC-2016249663

PATIENT
  Age: 65 Year
  Sex: Female
  Weight: 112.49 kg

DRUGS (1)
  1. IBRANCE [Suspect]
     Active Substance: PALBOCICLIB
     Indication: BREAST CANCER METASTATIC
     Dosage: 125 MG, ONE 125 MG CAPSULE DALLY FOR 21 DAYS
     Route: 048
     Dates: start: 20160414, end: 20160414

REACTIONS (1)
  - Anaemia [Unknown]
